FAERS Safety Report 17957378 (Version 3)
Quarter: 2022Q1

REPORT INFORMATION
  Report Type: Spontaneous
  Country: US (occurrence: US)
  Receive Date: 20200629
  Receipt Date: 20220118
  Transmission Date: 20220423
  Serious: Yes (Other)
  Sender: FDA-Public Use
  Company Number: US-PFIZER INC-2020248157

PATIENT
  Age: 64 Year
  Sex: Male
  Weight: 82.55 kg

DRUGS (3)
  1. METHOTREXATE SODIUM [Suspect]
     Active Substance: METHOTREXATE SODIUM
     Indication: Rheumatoid arthritis
     Dosage: 0.8 ML, ONCE A WEEKLY (THE COUNT SIZE IS 6 VIALS WITH 50 MG/2ML EACH)
     Dates: start: 20200514, end: 202006
  2. METHOTREXATE SODIUM [Suspect]
     Active Substance: METHOTREXATE SODIUM
     Indication: Chronic leukaemia
  3. FOLIC ACID [Concomitant]
     Active Substance: FOLIC ACID
     Indication: White blood cell count abnormal
     Dosage: 1 MG, DAILY
     Dates: start: 20200306

REACTIONS (2)
  - Rheumatoid arthritis [Unknown]
  - Drug ineffective [Recovered/Resolved]

NARRATIVE: CASE EVENT DATE: 20200514
